FAERS Safety Report 24030483 (Version 1)
Quarter: 2024Q2

REPORT INFORMATION
  Report Type: Spontaneous
  Country: US (occurrence: US)
  Receive Date: 20240628
  Receipt Date: 20240628
  Transmission Date: 20240716
  Serious: Yes (Other)
  Sender: FDA-Public Use
  Company Number: US-FARMAPROD-202406-2215

PATIENT
  Sex: Female
  Weight: 81.65 kg

DRUGS (27)
  1. OXERVATE [Suspect]
     Active Substance: CENEGERMIN-BKBJ
     Indication: Neurotrophic keratopathy
     Route: 047
     Dates: start: 20240531
  2. OXERVATE [Suspect]
     Active Substance: CENEGERMIN-BKBJ
  3. VITAMIN D3 [Concomitant]
     Active Substance: CHOLECALCIFEROL
  4. CAPSICUM\HERBALS [Concomitant]
     Active Substance: CAPSICUM\HERBALS
  5. COLLAGEN-VITAMIN C [Concomitant]
     Dosage: 1 G-10 MG
  6. METAMUCIL [Concomitant]
     Active Substance: PLANTAGO SEED
  7. MELATONIN [Concomitant]
     Active Substance: MELATONIN
  8. XYLITOL [Concomitant]
     Active Substance: XYLITOL
  9. VEVYE [Concomitant]
     Active Substance: CYCLOSPORINE
  10. FAMOTIDINE [Concomitant]
     Active Substance: FAMOTIDINE
  11. VALTREX [Concomitant]
     Active Substance: VALACYCLOVIR HYDROCHLORIDE
  12. ARIPIPRAZOLE [Concomitant]
     Active Substance: ARIPIPRAZOLE
  13. WELLBUTRIN XL [Concomitant]
     Active Substance: BUPROPION HYDROCHLORIDE
     Dosage: 24H
  14. WELLBUTRIN XL [Concomitant]
     Active Substance: BUPROPION HYDROCHLORIDE
  15. ICOSAPENT ETHYL [Concomitant]
     Active Substance: ICOSAPENT ETHYL
  16. DICLOFENAC SODIUM AND MISOPROSTOL [Concomitant]
     Active Substance: DICLOFENAC SODIUM\MISOPROSTOL
  17. ASPIRIN [Concomitant]
     Active Substance: ASPIRIN
  18. OMEPRAZOLE [Concomitant]
     Active Substance: OMEPRAZOLE
  19. PROLIA [Concomitant]
     Active Substance: DENOSUMAB
  20. MECLIZINE HYDROCHLORIDE [Concomitant]
     Active Substance: MECLIZINE HYDROCHLORIDE
  21. LORAZEPAM [Concomitant]
     Active Substance: LORAZEPAM
  22. GABAPENTIN [Concomitant]
     Active Substance: GABAPENTIN
  23. METFORMIN HYDROCHLORIDE [Concomitant]
     Active Substance: METFORMIN HYDROCHLORIDE
     Dosage: 24H
  24. OZEMPIC [Concomitant]
     Active Substance: SEMAGLUTIDE
     Dosage: 2MG/0.75ML
  25. ATORVASTATIN CALCIUM [Concomitant]
     Active Substance: ATORVASTATIN CALCIUM
  26. DULOXETINE HYDROCHLORIDE [Concomitant]
     Active Substance: DULOXETINE HYDROCHLORIDE
  27. LISINOPRIL [Concomitant]
     Active Substance: LISINOPRIL

REACTIONS (4)
  - Brain injury [Unknown]
  - Intentional product misuse [Unknown]
  - Ocular discomfort [Recovered/Resolved]
  - Product dose omission issue [Unknown]
